FAERS Safety Report 22978096 (Version 2)
Quarter: 2024Q3

REPORT INFORMATION
  Report Type: Spontaneous
  Country: US (occurrence: US)
  Receive Date: 20230925
  Receipt Date: 20240723
  Transmission Date: 20241017
  Serious: Yes (Hospitalization, Other)
  Sender: PFIZER
  Company Number: US-PFIZER INC-202300300127

PATIENT
  Age: 7 Year
  Sex: Female

DRUGS (1)
  1. OXBRYTA [Suspect]
     Active Substance: VOXELOTOR
     Dosage: 300MG ORAL SUSPENION 2 TABLET ONCE DAILY, ORALLY
     Route: 048
     Dates: start: 202209

REACTIONS (5)
  - Skin infection [Unknown]
  - Arthropod bite [Unknown]
  - Sickle cell anaemia with crisis [Recovered/Resolved]
  - COVID-19 [Unknown]
  - Streptococcal infection [Unknown]

NARRATIVE: CASE EVENT DATE: 20230901
